FAERS Safety Report 7464860-2 (Version None)
Quarter: 2011Q2

REPORT INFORMATION
  Report Type: 
  Country: None (occurrence: None)
  Receive Date: 20110509
  Receipt Date: 20110427
  Transmission Date: 20111010
  Serious: Yes (Other)
  Sender: FDA-Public Use
  Company Number: GB-NOVOPROD-326588

PATIENT
  Age: 65 Year
  Sex: Female
  Weight: 119 kg

DRUGS (2)
  1. INSULIN [Concomitant]
  2. VICTOZA [Suspect]
     Indication: TYPE 2 DIABETES MELLITUS
     Dosage: 1.8 MG, QD
     Dates: start: 20100301, end: 20110309

REACTIONS (1)
  - GLOMERULAR FILTRATION RATE DECREASED [None]
